FAERS Safety Report 7919093-X (Version None)
Quarter: 2011Q4

REPORT INFORMATION
  Report Type: 
  Country: None (occurrence: None)
  Receive Date: 20111116
  Receipt Date: 20111107
  Transmission Date: 20120403
  Serious: Yes (Hospitalization, Other)
  Sender: FDA-Public Use
  Company Number: US-ASTRAZENECA-2011SE45764

PATIENT
  Age: 59 Year
  Sex: Female

DRUGS (14)
  1. SEROQUEL [Concomitant]
     Route: 048
  2. OXYCODONE HCL [Concomitant]
  3. PROZAC [Concomitant]
  4. NEXIUM [Suspect]
     Route: 048
  5. LEVOTHYROXINE SODIUM [Concomitant]
  6. OXYCONTIN [Concomitant]
  7. CELEXA [Concomitant]
  8. OXYCODONE HCL [Concomitant]
  9. OPANA [Concomitant]
  10. OMEPRAZOLE [Concomitant]
     Route: 048
  11. CLONAZEPAM [Concomitant]
  12. ZYPREXA [Concomitant]
  13. XANAX [Concomitant]
  14. PREVACID [Concomitant]

REACTIONS (30)
  - DYSPEPSIA [None]
  - ANXIETY [None]
  - HIATUS HERNIA [None]
  - SLEEP APNOEA SYNDROME [None]
  - SINUS BRADYCARDIA [None]
  - DRUG DOSE OMISSION [None]
  - OVERDOSE [None]
  - OESOPHAGITIS [None]
  - HAEMORRHOIDS [None]
  - HYPOTHYROIDISM [None]
  - INTERVERTEBRAL DISC DEGENERATION [None]
  - DEMENTIA [None]
  - COUGH [None]
  - PNEUMONIA ASPIRATION [None]
  - MUSCULOSKELETAL CHEST PAIN [None]
  - HYPERCALCAEMIA [None]
  - CHEST PAIN [None]
  - IRRITABLE BOWEL SYNDROME [None]
  - DIARRHOEA [None]
  - PAIN [None]
  - GASTROOESOPHAGEAL REFLUX DISEASE [None]
  - DEPRESSION [None]
  - ATRIOVENTRICULAR BLOCK FIRST DEGREE [None]
  - SMALL INTESTINE ULCER [None]
  - PEPTIC ULCER [None]
  - CHRONIC OBSTRUCTIVE PULMONARY DISEASE [None]
  - WEIGHT DECREASED [None]
  - GASTRITIS [None]
  - HYPOKALAEMIA [None]
  - HYPONATRAEMIA [None]
